FAERS Safety Report 5397321-5 (Version None)
Quarter: 2007Q3

REPORT INFORMATION
  Report Type: 
  Country: None (occurrence: None)
  Receive Date: 20070723
  Receipt Date: 20070709
  Transmission Date: 20080115
  Serious: Yes (Life-Threatening, Hospitalization, Other)
  Sender: FDA-Public Use
  Company Number: 07072181

PATIENT
  Age: 56 Year
  Sex: Female

DRUGS (1)
  1. ETODOLAC [Suspect]
     Indication: RHEUMATOID ARTHRITIS
     Dosage: 400MG, QD, ORAL
     Route: 048

REACTIONS (4)
  - BLOOD CHOLESTEROL INCREASED [None]
  - GLOMERULONEPHRITIS MEMBRANOUS [None]
  - OEDEMA PERIPHERAL [None]
  - PROTEINURIA [None]
